FAERS Safety Report 14797884 (Version 1)
Quarter: 2018Q2

REPORT INFORMATION
  Report Type: Report from Study
  Country: DE (occurrence: DE)
  Receive Date: 20180424
  Receipt Date: 20180424
  Transmission Date: 20180711
  Serious: Yes (Hospitalization)
  Sender: FDA-Public Use
  Company Number: DE-TEVA-2018-DE-885063

PATIENT
  Age: 72 Year
  Sex: Female
  Weight: 63.5 kg

DRUGS (10)
  1. PACLITAXEL. [Suspect]
     Active Substance: PACLITAXEL
     Indication: BREAST CANCER
     Dosage: SUBSEQUENT DOSES ON 03/DEC/2010, 10/DEC/2010, 23/DEC/2010, 30/DEC/2010, 06/JAN/2011, 20/JAN/2011, 27
     Route: 042
     Dates: start: 20101126, end: 20110303
  2. BEVACIZUMAB. [Suspect]
     Active Substance: BEVACIZUMAB
     Route: 042
     Dates: start: 20110303, end: 20110303
  3. PACLITAXEL. [Suspect]
     Active Substance: PACLITAXEL
     Indication: BREAST CANCER
     Dates: start: 20101126
  4. BEVACIZUMAB. [Suspect]
     Active Substance: BEVACIZUMAB
     Indication: BREAST CANCER
     Route: 042
     Dates: start: 20101126, end: 20101126
  5. ATACAND [Concomitant]
     Active Substance: CANDESARTAN CILEXETIL
     Indication: HYPERTENSION
     Dosage: LONG-TERM MEDICATION
     Route: 048
  6. BISOPROLOL [Concomitant]
     Active Substance: BISOPROLOL
     Route: 065
     Dates: start: 20101217
  7. NITRENDIPINE [Concomitant]
     Active Substance: NITRENDIPINE
     Route: 065
     Dates: start: 20101217
  8. METFORMIN [Concomitant]
     Active Substance: METFORMIN HYDROCHLORIDE
     Indication: DIABETES MELLITUS
     Dosage: LONG-TERM MEDICATION
     Route: 065
  9. ASPIRIN. [Concomitant]
     Active Substance: ASPIRIN
     Dosage: LONG-TERM MEDICATION
     Route: 048
  10. GLIBENCLAMID [Concomitant]
     Active Substance: GLYBURIDE
     Route: 065
     Dates: start: 20101217

REACTIONS (4)
  - Hypertension [Recovered/Resolved]
  - Epistaxis [Recovered/Resolved]
  - Headache [Recovered/Resolved]
  - Hypertension [Recovered/Resolved]

NARRATIVE: CASE EVENT DATE: 20101215
